FAERS Safety Report 6140398-X (Version None)
Quarter: 2009Q2

REPORT INFORMATION
  Report Type: 
  Country: None (occurrence: None)
  Receive Date: 20090401
  Receipt Date: 20090327
  Transmission Date: 20091009
  Serious: Yes (Disabling)
  Sender: FDA-Public Use
  Company Number: US-MERCK-0903USA05019

PATIENT
  Age: 46 Year
  Sex: Female
  Weight: 51 kg

DRUGS (11)
  1. FOSAMAX [Suspect]
     Indication: OSTEOPOROSIS
     Route: 048
  2. BONIVA [Suspect]
     Indication: OSTEOPOROSIS
     Route: 042
     Dates: start: 20070220, end: 20080320
  3. BONIVA [Suspect]
     Route: 048
  4. AMITRIPTYLINE HYDROCHLORIDE [Concomitant]
     Route: 048
  5. ESTRATEST [Concomitant]
     Route: 065
  6. ACTONEL [Suspect]
     Indication: OSTEOPOROSIS
     Route: 065
  7. MIDRIN [Concomitant]
     Route: 065
  8. ESTRATEST H.S. [Concomitant]
     Route: 065
     Dates: start: 20041101
  9. XANAX [Concomitant]
     Route: 065
     Dates: start: 20070101
  10. VITAMIN D (UNSPECIFIED) [Concomitant]
     Route: 065
  11. CALCIUM (UNSPECIFIED) [Concomitant]
     Route: 065

REACTIONS (4)
  - ARTHRALGIA [None]
  - COCCYDYNIA [None]
  - DYSPEPSIA [None]
  - MYALGIA [None]
